FAERS Safety Report 5750683-9 (Version None)
Quarter: 2008Q2

REPORT INFORMATION
  Report Type: 
  Country: None (occurrence: None)
  Receive Date: 20080528
  Receipt Date: 20080523
  Transmission Date: 20081010
  Serious: Yes (Death, Life-Threatening, Hospitalization)
  Sender: FDA-Public Use
  Company Number: JP-JNJFOC-20080305566

PATIENT
  Sex: Male
  Weight: 43 kg

DRUGS (14)
  1. FENTANYL-100 [Suspect]
     Route: 062
  2. FENTANYL-100 [Suspect]
     Route: 062
  3. FENTANYL-100 [Suspect]
     Indication: PAIN
     Route: 062
  4. FENTANYL-100 [Suspect]
     Indication: CANCER PAIN
     Route: 062
  5. LOXONIN [Concomitant]
     Indication: CANCER PAIN
     Route: 048
  6. EURODIN [Concomitant]
     Indication: INSOMNIA
     Route: 048
  7. BROCIN [Concomitant]
     Indication: PRODUCTIVE COUGH
     Route: 048
  8. ALLOID G [Concomitant]
     Indication: PRODUCTIVE COUGH
     Route: 048
  9. VOLTAREN [Concomitant]
     Indication: CANCER PAIN
     Route: 054
  10. FENTANYL TRANSDERMAL SYSTEM [Concomitant]
     Indication: CANCER PAIN
     Route: 062
  11. ROPION [Concomitant]
     Indication: CANCER PAIN
     Dosage: 50MG 5ML
     Route: 042
  12. VEEN-D [Concomitant]
     Indication: NUTRITIONAL SUPPORT
     Route: 042
  13. SULBACILLIN [Concomitant]
     Indication: PNEUMONIA
     Route: 041
  14. ISOTONIC SODIUM CHLORIDE SOLUTION [Concomitant]
     Indication: PNEUMONIA
     Route: 042

REACTIONS (2)
  - DISSEMINATED INTRAVASCULAR COAGULATION [None]
  - PNEUMONIA ASPIRATION [None]
